FAERS Safety Report 20085181 (Version 1)
Quarter: 2021Q4

REPORT INFORMATION
  Report Type: Spontaneous
  Country: US (occurrence: US)
  Receive Date: 20211118
  Receipt Date: 20211118
  Transmission Date: 20220303
  Serious: Yes (Life-Threatening, Hospitalization)
  Sender: FDA-Public Use
  Company Number: US-STRIDES ARCOLAB LIMITED-2021SP029849

PATIENT
  Age: 86 Year
  Sex: Female

DRUGS (1)
  1. PREDNISOLONE [Suspect]
     Active Substance: PREDNISOLONE
     Indication: Interstitial lung disease
     Dosage: 10 MILLIGRAM
     Route: 065

REACTIONS (5)
  - Interstitial lung disease [Not Recovered/Not Resolved]
  - Nocardiosis [Not Recovered/Not Resolved]
  - Muscle abscess [Not Recovered/Not Resolved]
  - Eye abscess [Not Recovered/Not Resolved]
  - Brain abscess [Not Recovered/Not Resolved]
